FAERS Safety Report 9288486 (Version 1)
Quarter: 2013Q2

REPORT INFORMATION
  Report Type: Spontaneous
  Country: DE (occurrence: DE)
  Receive Date: 20130514
  Receipt Date: 20130514
  Transmission Date: 20140414
  Serious: Yes (Congenital Anomaly)
  Sender: FDA-Public Use
  Company Number: GXKR2013DE001760

PATIENT
  Sex: 0

DRUGS (3)
  1. RAMIPRIL [Suspect]
     Indication: HYPERTENSION
     Dosage: MATERNAL DOSE: 5 [MG/D ] (GW 0-8.6)
     Route: 064
     Dates: start: 20111227, end: 20120227
  2. FOLIC ACID [Concomitant]
     Indication: PROPHYLAXIS OF NEURAL TUBE DEFECT
     Dosage: MATERNAL DOSE: 0.4 [MG/D ] (GW 7.3-40.5)
     Route: 064
     Dates: start: 20120217, end: 20121007
  3. L-THYROXINE [Concomitant]
     Indication: HYPOTHYROIDISM
     Dosage: MATERNAL DOSE: 50 [?G/D ] (GW0-40.5)
     Route: 064
     Dates: start: 20111227, end: 20121007

REACTIONS (3)
  - Ventricular septal defect [Recovering/Resolving]
  - Talipes [Unknown]
  - Exposure during pregnancy [Recovered/Resolved]
